FAERS Safety Report 20474530 (Version 1)
Quarter: 2022Q1

REPORT INFORMATION
  Report Type: Other
  Country: GB (occurrence: None)
  Receive Date: 20220215
  Receipt Date: 20220215
  Transmission Date: 20220423
  Serious: Yes (Hospitalization)
  Sender: FDA-Public Use
  Company Number: GB-ROCHE-3019745

PATIENT
  Sex: Male

DRUGS (1)
  1. ESBRIET [Suspect]
     Active Substance: PIRFENIDONE
     Indication: Idiopathic pulmonary fibrosis
     Route: 048
     Dates: start: 202106

REACTIONS (2)
  - Heart rate increased [Unknown]
  - Dizziness [Unknown]
